FAERS Safety Report 20718232 (Version 1)
Quarter: 2022Q2

REPORT INFORMATION
  Report Type: Spontaneous
  Country: JP (occurrence: JP)
  Receive Date: 20220418
  Receipt Date: 20220418
  Transmission Date: 20220721
  Serious: Yes (Other)
  Sender: FDA-Public Use
  Company Number: JP-SUN PHARMACEUTICAL INDUSTRIES LTD-2022RR-332595

PATIENT
  Age: 54 Year
  Sex: Female
  Weight: 39.3 kg

DRUGS (11)
  1. BOSENTAN [Suspect]
     Active Substance: BOSENTAN
     Indication: Pulmonary hypertension
     Dosage: 250 MILLIGRAM, UNK
     Route: 065
  2. EPOPROSTENOL [Suspect]
     Active Substance: EPOPROSTENOL
     Indication: Connective tissue disorder
     Dosage: 90 MG/KG/MIN
     Route: 042
  3. SILDENAFIL [Concomitant]
     Active Substance: SILDENAFIL
     Indication: Connective tissue disorder
     Dosage: 60 MILLIGRAM, UNK
     Route: 065
  4. SILDENAFIL [Concomitant]
     Active Substance: SILDENAFIL
     Indication: pH body fluid abnormal
  5. BERAPROST [Concomitant]
     Active Substance: BERAPROST
     Indication: Pulmonary hypertension
     Dosage: UNK
     Route: 065
  6. AZATHIOPRINE [Concomitant]
     Active Substance: AZATHIOPRINE
     Indication: Pleuropericarditis
     Dosage: 50 MILLIGRAM, UNK
     Route: 065
  7. MIZORIBINE [Concomitant]
     Active Substance: MIZORIBINE
     Indication: Pleuropericarditis
     Dosage: 150 MILLIGRAM, UNK
     Route: 065
  8. SELEXIPAG [Concomitant]
     Active Substance: SELEXIPAG
     Indication: Connective tissue disorder
     Dosage: 3.2 MILLIGRAM, UNK
  9. PIMOBENDAN [Concomitant]
     Active Substance: PIMOBENDAN
     Indication: Product used for unknown indication
     Dosage: 2.5 MILLIGRAM, UNK
     Route: 065
  10. PIMOBENDAN [Concomitant]
     Active Substance: PIMOBENDAN
     Dosage: 1.5 MILLIGRAM, UNK
     Route: 065
  11. CARVEDILOL [Concomitant]
     Active Substance: CARVEDILOL
     Indication: Product used for unknown indication
     Dosage: 2.5 MILLIGRAM, UNK
     Route: 065

REACTIONS (2)
  - Drug ineffective [Unknown]
  - Pleuropericarditis [Unknown]
